FAERS Safety Report 22304378 (Version 1)
Quarter: 2023Q2

REPORT INFORMATION
  Report Type: Spontaneous
  Country: US (occurrence: None)
  Receive Date: 20230509
  Receipt Date: 20230509
  Transmission Date: 20230722
  Serious: No
  Sender: FDA-Public Use
  Company Number: None

PATIENT
  Sex: Male

DRUGS (1)
  1. LIDOCAINE HYDROCHLORIDE [Suspect]
     Active Substance: LIDOCAINE HYDROCHLORIDE
     Indication: Oral pain
     Dosage: OTHER QUANTITY : 5 APPLY;?FREQUENCY : 4 TIMES A DAY;?
     Route: 048
     Dates: start: 20230417, end: 20230505

REACTIONS (3)
  - Malaise [None]
  - Vomiting [None]
  - Mobility decreased [None]
